FAERS Safety Report 6383457-9 (Version None)
Quarter: 2009Q4

REPORT INFORMATION
  Report Type: 
  Country: None (occurrence: None)
  Receive Date: 20091001
  Receipt Date: 20090923
  Transmission Date: 20100525
  Serious: Yes (Other)
  Sender: FDA-Public Use
  Company Number: PHHY2009FR41349

PATIENT
  Age: 22 Year
  Sex: Male

DRUGS (1)
  1. TEGRETOL [Suspect]
     Indication: EPILEPSY
     Dosage: 1000 TO 1200 MG DAILY

REACTIONS (2)
  - ASTHENOSPERMIA [None]
  - VARICOCELE [None]
